FAERS Safety Report 23215452 (Version 1)
Quarter: 2023Q4

REPORT INFORMATION
  Report Type: Spontaneous
  Country: PL (occurrence: PL)
  Receive Date: 20231122
  Receipt Date: 20231122
  Transmission Date: 20240109
  Serious: Yes (Other)
  Sender: FDA-Public Use
  Company Number: None

PATIENT
  Age: 54 Year
  Sex: Female
  Weight: 72 kg

DRUGS (3)
  1. ENBREL [Suspect]
     Active Substance: ETANERCEPT
     Indication: Rheumatoid arthritis
     Dosage: 50 MILLIGRAM, QWK
     Route: 058
     Dates: start: 20181022, end: 20190415
  2. PREDNISOLONE [Concomitant]
     Active Substance: PREDNISOLONE
     Dosage: THERAPY ONGOING.
     Route: 048
     Dates: start: 1987
  3. Metex [Concomitant]
     Dosage: THERAPY ONGOING.
     Route: 058
     Dates: start: 201506

REACTIONS (3)
  - Body temperature increased [Recovered/Resolved]
  - Pharyngeal oedema [Recovered/Resolved]
  - Dyspnoea [Recovered/Resolved]

NARRATIVE: CASE EVENT DATE: 20190415
